FAERS Safety Report 25238584 (Version 2)
Quarter: 2025Q2

REPORT INFORMATION
  Report Type: Report from Study
  Country: US (occurrence: US)
  Receive Date: 20250425
  Receipt Date: 20250501
  Transmission Date: 20250716
  Serious: Yes (Other)
  Sender: ABBVIE
  Company Number: US-ABBVIE-6242455

PATIENT
  Age: 52 Year
  Sex: Male
  Weight: 63.503 kg

DRUGS (1)
  1. SKYRIZI [Suspect]
     Active Substance: RISANKIZUMAB-RZAA
     Indication: Crohn^s disease
     Dosage: 360 MG/2.4 ML (150 MG/ML)
     Route: 058
     Dates: start: 202405

REACTIONS (16)
  - Surgery [Unknown]
  - Crohn^s disease [Not Recovered/Not Resolved]
  - Anastomotic ulcer [Unknown]
  - Stoma site erythema [Unknown]
  - Anal stenosis [Unknown]
  - Anorectal polyp [Unknown]
  - Gastrointestinal disorder [Unknown]
  - Gastrointestinal mucosa hyperaemia [Unknown]
  - Anal erythema [Unknown]
  - Stoma site inflammation [Unknown]
  - Intestinal anastomosis [Unknown]
  - Colitis ulcerative [Unknown]
  - Polyp [Unknown]
  - Ileal ulcer [Unknown]
  - Anal ulcer [Unknown]
  - Anastomotic complication [Unknown]

NARRATIVE: CASE EVENT DATE: 20250402
